FAERS Safety Report 5047128-3 (Version None)
Quarter: 2006Q3

REPORT INFORMATION
  Report Type: 
  Country: None (occurrence: None)
  Receive Date: 20060703
  Receipt Date: 20060622
  Transmission Date: 20061208
  Serious: Yes (Death, Hospitalization)
  Sender: FDA-Public Use
  Company Number: 2006078147

PATIENT
  Age: 62 Year
  Sex: Male

DRUGS (4)
  1. ATORVASTATIN CALCIUM [Suspect]
     Indication: HYPERCHOLESTEROLAEMIA
     Dosage: 20 MG (40 MG, 1 IN 1 D), ORAL
     Route: 048
     Dates: start: 20030823, end: 20060508
  2. ASPIRIN [Concomitant]
  3. BETALOC (METOPROLOL TARTRATE) [Concomitant]
  4. ENALAPRIL MALEATE [Concomitant]

REACTIONS (2)
  - COMA HEPATIC [None]
  - HEPATIC CIRRHOSIS [None]
